FAERS Safety Report 7906607-9 (Version None)
Quarter: 2011Q4

REPORT INFORMATION
  Report Type: 
  Country: None (occurrence: None)
  Receive Date: 20111109
  Receipt Date: 20111109
  Transmission Date: 20120403
  Serious: No
  Sender: FDA-Public Use
  Company Number: None

PATIENT
  Sex: Female
  Weight: 88.4514 kg

DRUGS (2)
  1. BONIVA [Suspect]
     Indication: OSTEOPENIA
     Dates: start: 20110715
  2. BONIVA [Suspect]
     Indication: OSTEOPENIA
     Dates: start: 20110615

REACTIONS (4)
  - BONE PAIN [None]
  - GROIN PAIN [None]
  - PAIN IN EXTREMITY [None]
  - ARTHRALGIA [None]
